FAERS Safety Report 6445573-2 (Version None)
Quarter: 2009Q4

REPORT INFORMATION
  Report Type: 
  Country: None (occurrence: None)
  Receive Date: 20091112
  Receipt Date: 20091104
  Transmission Date: 20100525
  Serious: Yes (Death, Hospitalization, Other)
  Sender: FDA-Public Use
  Company Number: 2009US003945

PATIENT
  Age: 60 Year
  Sex: Male

DRUGS (3)
  1. PROGRAF [Suspect]
     Indication: LIVER TRANSPLANT
     Dosage: 0.5 MG, BID, 0.5 MG, UID/QD
     Dates: end: 20080801
  2. PROGRAF [Suspect]
     Indication: LIVER TRANSPLANT
     Dosage: 0.5 MG, BID, 0.5 MG, UID/QD
     Dates: start: 20080801
  3. RITUXIMAB) [Suspect]
     Indication: CHEMOTHERAPY
     Dosage: 375 MG/M2
     Dates: start: 20080801

REACTIONS (9)
  - ASCITES [None]
  - DIFFUSE LARGE B-CELL LYMPHOMA [None]
  - DISEASE RECURRENCE [None]
  - HEPATITIS C [None]
  - MULTI-ORGAN FAILURE [None]
  - PERITONITIS [None]
  - PNEUMATOSIS INTESTINALIS [None]
  - SMALL INTESTINAL PERFORATION [None]
  - UMBILICAL HERNIA, OBSTRUCTIVE [None]
